FAERS Safety Report 4509148-4 (Version None)
Quarter: 2004Q4

REPORT INFORMATION
  Report Type: 
  Country: None (occurrence: None)
  Receive Date: 20041025
  Receipt Date: 20040218
  Transmission Date: 20050328
  Serious: Yes (Hospitalization)
  Sender: FDA-Public Use
  Company Number: NSADSS2003010708

PATIENT
  Age: 50 Year
  Sex: Female
  Weight: 56.246 kg

DRUGS (1)
  1. REMICADE [Suspect]
     Indication: CROHN'S DISEASE
     Dosage: 5 MG/KG, 1 IN 1 AS NECESSARY, INTRAVENOUS DRIP
     Route: 041
     Dates: start: 20030303, end: 20030303

REACTIONS (3)
  - BRONCHOSPASM [None]
  - HYPOTENSION [None]
  - PAIN [None]
